FAERS Safety Report 8286724-7 (Version None)
Quarter: 2012Q2

REPORT INFORMATION
  Report Type: 
  Country: None (occurrence: None)
  Receive Date: 20120416
  Receipt Date: 20120402
  Transmission Date: 20120825
  Serious: No
  Sender: FDA-Public Use
  Company Number: US-VIROPHARMA INCORPORATED-20120322CINRY2774

PATIENT
  Sex: Female

DRUGS (1)
  1. CINRYZE [Suspect]
     Indication: ANGIOEDEMA

REACTIONS (4)
  - OFF LABEL USE [None]
  - OCULAR HYPERAEMIA [None]
  - EYE DISCHARGE [None]
  - EYE PRURITUS [None]
